FAERS Safety Report 13385750 (Version 1)
Quarter: 2017Q1

REPORT INFORMATION
  Report Type: Spontaneous
  Country: US (occurrence: US)
  Receive Date: 20170330
  Receipt Date: 20170330
  Transmission Date: 20170429
  Serious: No
  Sender: FDA-Public Use
  Company Number: US-AUROBINDO-AUR-APL-2016-06434

PATIENT
  Sex: Male
  Weight: 113.4 kg

DRUGS (6)
  1. IBUPROFEN. [Concomitant]
     Active Substance: IBUPROFEN
     Indication: PRODUCT USED FOR UNKNOWN INDICATION
     Route: 065
  2. VALSARTAN HCTZ [Concomitant]
     Active Substance: HYDROCHLOROTHIAZIDE\VALSARTAN
     Indication: HYPERTENSION
     Dosage: 1 DF, ONCE A DAY
     Route: 065
     Dates: start: 20160425
  3. CRESTOR [Concomitant]
     Active Substance: ROSUVASTATIN CALCIUM
     Indication: BLOOD CHOLESTEROL INCREASED
     Dosage: 10 MG, ONCE A DAY
     Route: 065
  4. ATORVASTATIN                       /01326102/ [Concomitant]
     Active Substance: ATORVASTATIN
     Indication: BLOOD CHOLESTEROL INCREASED
     Dosage: 20 MG, ONCE A DAY
  5. GABAPENTIN CAPSULES [Suspect]
     Active Substance: GABAPENTIN
     Indication: PAIN
     Dosage: 400 MG,THREE TIMES A DAY
     Route: 065
     Dates: start: 20160427
  6. AMLODIPINE [Suspect]
     Active Substance: AMLODIPINE BESYLATE
     Indication: HYPERTENSION
     Dosage: 10 MG, ONCE A DAY

REACTIONS (3)
  - Fatigue [Recovering/Resolving]
  - Drug ineffective [Recovering/Resolving]
  - Peripheral swelling [Recovering/Resolving]
